FAERS Safety Report 8090229 (Version 4)
Quarter: 2014Q2

REPORT INFORMATION
  Report Type: Spontaneous
  Country: CA (occurrence: CA)
  Receive Date: 20110815
  Receipt Date: 20140619
  Transmission Date: 20141212
  Serious: Yes (Other)
  Sender: FDA-Public Use
  Company Number: CA-GLAXOSMITHKLINE-A0938055A

PATIENT
  Age: 67 Year
  Sex: Female
  Weight: 73.5 kg

DRUGS (7)
  1. ADVAIR HFA [Suspect]
     Indication: CHRONIC OBSTRUCTIVE PULMONARY DISEASE
     Dosage: 1PUFF TWICE PER DAY
     Route: 055
  2. VENTOLIN [Suspect]
     Indication: PRODUCT USED FOR UNKNOWN INDICATION
     Dosage: 9PUFF UNKNOWN
     Route: 065
     Dates: start: 201301
  3. SPIRIVA [Concomitant]
     Indication: CHRONIC OBSTRUCTIVE PULMONARY DISEASE
  4. AIROMIR [Concomitant]
  5. DICLOFENAC [Concomitant]
  6. VENTOLIN [Concomitant]
     Indication: CHRONIC OBSTRUCTIVE PULMONARY DISEASE
  7. OXYGEN [Concomitant]

REACTIONS (14)
  - Weight increased [Unknown]
  - Abdominal distension [Unknown]
  - Weight loss poor [Unknown]
  - Productive cough [Unknown]
  - Dyspnoea [Unknown]
  - Inappropriate schedule of drug administration [Unknown]
  - Thyroid function test abnormal [Unknown]
  - Pneumonia [Unknown]
  - Drug administration error [Unknown]
  - Laceration [Recovered/Resolved]
  - Overdose [Unknown]
  - Dyspnoea [Not Recovered/Not Resolved]
  - Breath sounds abnormal [Not Recovered/Not Resolved]
  - Product quality issue [Unknown]
